FAERS Safety Report 25800851 (Version 2)
Quarter: 2025Q3

REPORT INFORMATION
  Report Type: Spontaneous
  Country: US (occurrence: US)
  Receive Date: 20250915
  Receipt Date: 20250923
  Transmission Date: 20251021
  Serious: Yes (Other)
  Sender: TEVA
  Company Number: US-TEVA-VS-3370865

PATIENT
  Age: 71 Year
  Sex: Female

DRUGS (2)
  1. LINEZOLID [Suspect]
     Active Substance: LINEZOLID
     Indication: Post procedural infection
     Dosage: COMPLETED 10 DAY COURSE
     Route: 048
  2. CIPROFLOXACIN [Suspect]
     Active Substance: CIPROFLOXACIN
     Indication: Post procedural infection
     Dosage: COMPLETED 10 DAY COURSE
     Route: 048

REACTIONS (3)
  - Glossitis [Recovered/Resolved]
  - Papillitis [Recovered/Resolved]
  - Off label use [Unknown]
